FAERS Safety Report 5852581-9 (Version None)
Quarter: 2008Q3

REPORT INFORMATION
  Report Type: 
  Country: None (occurrence: None)
  Receive Date: 20080820
  Receipt Date: 20080820
  Transmission Date: 20090109
  Serious: Yes (Hospitalization)
  Sender: FDA-Public Use
  Company Number: None

PATIENT
  Age: 72 Year
  Sex: Female
  Weight: 68.0396 kg

DRUGS (2)
  1. LEVAQUIN [Suspect]
     Indication: URINARY TRACT INFECTION
     Dates: start: 20071101, end: 20071101
  2. LEVAQUIN [Suspect]
     Indication: URINARY TRACT INFECTION
     Dates: start: 20080201, end: 20080201

REACTIONS (23)
  - AMNESIA [None]
  - ANKLE FRACTURE [None]
  - DYSSTASIA [None]
  - EAR PAIN [None]
  - FALL [None]
  - FATIGUE [None]
  - GAIT DISTURBANCE [None]
  - IMMOBILE [None]
  - LIMB INJURY [None]
  - LOSS OF CONSCIOUSNESS [None]
  - MEDICAL DEVICE COMPLICATION [None]
  - OEDEMA PERIPHERAL [None]
  - PAIN [None]
  - PAIN IN EXTREMITY [None]
  - PAIN IN JAW [None]
  - PARAESTHESIA [None]
  - POST PROCEDURAL COMPLICATION [None]
  - SCAR [None]
  - SCREAMING [None]
  - STRESS [None]
  - SYNCOPE [None]
  - TOOTH DISORDER [None]
  - URINARY TRACT INFECTION [None]
